FAERS Safety Report 6719438-2 (Version None)
Quarter: 2010Q2

REPORT INFORMATION
  Report Type: 
  Country: None (occurrence: None)
  Receive Date: 20100510
  Receipt Date: 20100510
  Transmission Date: 20101027
  Serious: Yes (Death, Hospitalization)
  Sender: FDA-Public Use
  Company Number: None

PATIENT
  Sex: Male
  Weight: 66.4 kg

DRUGS (4)
  1. TARCEVA [Suspect]
     Indication: NON-SMALL CELL LUNG CANCER
     Dosage: 150 MG QD ORAL
     Route: 048
     Dates: start: 20100324, end: 20100419
  2. ZOLEDRONIC ACID [Concomitant]
  3. ACETAMINOPHEN AND HYDROCODONE BITARTRATE [Suspect]
  4. ALBUTEROL [Concomitant]

REACTIONS (4)
  - COLLAPSE OF LUNG [None]
  - DEHYDRATION [None]
  - GASTROINTESTINAL ULCER HAEMORRHAGE [None]
  - SUDDEN DEATH [None]
